FAERS Safety Report 10043979 (Version 1)
Quarter: 2014Q1

REPORT INFORMATION
  Report Type: Spontaneous
  Country: US (occurrence: None)
  Receive Date: 20140327
  Receipt Date: 20140327
  Transmission Date: 20141002
  Serious: Yes (Hospitalization)
  Sender: FDA-Public Use
  Company Number: None

PATIENT
  Age: 70 Year
  Sex: Male
  Weight: 104 kg

DRUGS (4)
  1. EPTIFIBATIDE [Suspect]
     Indication: ACUTE MYOCARDIAL INFARCTION
     Dosage: 2 MCG/KG/MIN, CONTINUOUS INFUSIO, INTRAVENOUS, 9 HRS, 48 MIN
     Route: 042
  2. EPTIFIBATIDE [Suspect]
     Indication: THROMBOSIS IN DEVICE
     Dosage: 2 MCG/KG/MIN, CONTINUOUS INFUSIO, INTRAVENOUS, 9 HRS, 48 MIN
     Route: 042
  3. PLAVIX [Concomitant]
  4. BIVALRUDIN [Concomitant]

REACTIONS (1)
  - Thrombocytopenia [None]
